FAERS Safety Report 5183610-6 (Version None)
Quarter: 2006Q4

REPORT INFORMATION
  Report Type: 
  Country: None (occurrence: None)
  Receive Date: 20061220
  Receipt Date: 20060116
  Transmission Date: 20070319
  Serious: Yes (Life-Threatening, Hospitalization, Disabling)
  Sender: FDA-Public Use
  Company Number: DE-MERCK-0601DEU00069

PATIENT
  Age: 64 Year
  Sex: Female

DRUGS (10)
  1. FOSAMAX [Suspect]
     Indication: OSTEOPOROSIS
     Route: 048
     Dates: start: 20031113, end: 20040201
  2.  [Concomitant]
     Route: 065
     Dates: start: 19950101
  3.  [Concomitant]
     Route: 065
     Dates: start: 20000101
  4.  [Concomitant]
     Route: 048
     Dates: start: 20010101
  5.  [Concomitant]
     Route: 048
     Dates: start: 20010101
  6.  [Concomitant]
     Route: 065
     Dates: start: 20020101
  7.  [Concomitant]
     Route: 065
     Dates: start: 20000101
  8.  [Concomitant]
     Route: 065
     Dates: start: 20000101
  9.  [Concomitant]
     Route: 065
  10.  [Concomitant]
     Route: 065

REACTIONS (7)
  - HYPERPLASIA [None]
  - NASAL DISORDER [None]
  - NASAL POLYPS [None]
  - NASAL SEPTUM DEVIATION [None]
  - OSTEOMYELITIS [None]
  - OSTEONECROSIS [None]
  - RHINITIS [None]
